FAERS Safety Report 25572818 (Version 1)
Quarter: 2025Q3

REPORT INFORMATION
  Report Type: Spontaneous
  Country: US (occurrence: US)
  Receive Date: 20250717
  Receipt Date: 20250717
  Transmission Date: 20251021
  Serious: No
  Sender: SANOFI AVENTIS
  Company Number: US-SA-2025SA201505

PATIENT
  Age: 35 Year
  Sex: Female

DRUGS (1)
  1. DUPIXENT [Suspect]
     Active Substance: DUPILUMAB
     Indication: Asthma
     Dosage: 300MG QOW
     Route: 058
     Dates: start: 202412

REACTIONS (6)
  - Eczema eyelids [Unknown]
  - Food allergy [Unknown]
  - Condition aggravated [Unknown]
  - Throat tightness [Unknown]
  - Swelling of eyelid [Unknown]
  - Asthma [Unknown]

NARRATIVE: CASE EVENT DATE: 20250101
